FAERS Safety Report 9007145 (Version 1)
Quarter: 2013Q1

REPORT INFORMATION
  Report Type: Spontaneous
  Country: US (occurrence: US)
  Receive Date: 20130110
  Receipt Date: 20130110
  Transmission Date: 20140127
  Serious: No
  Sender: FDA-Public Use
  Company Number: US-BAYER-2013-003567

PATIENT
  Age: 49 Year
  Sex: Female

DRUGS (1)
  1. CLIMARA [Suspect]
     Dosage: 0.1 MG, UNK
     Route: 062

REACTIONS (4)
  - Application site pruritus [None]
  - Application site pain [None]
  - Application site reaction [None]
  - Product adhesion issue [None]
